FAERS Safety Report 6743540-2 (Version None)
Quarter: 2010Q2

REPORT INFORMATION
  Report Type: 
  Country: None (occurrence: None)
  Receive Date: 20100527
  Receipt Date: 20050805
  Transmission Date: 20101027
  Serious: Yes (Hospitalization)
  Sender: FDA-Public Use
  Company Number: PHEH2005US08719

PATIENT
  Age: 14 Year
  Sex: Female

DRUGS (1)
  1. GLEEVEC [Suspect]
     Dosage: UNK, ONCE/SINGLE
     Route: 048
     Dates: start: 20050804, end: 20050804

REACTIONS (2)
  - INTENTIONAL OVERDOSE [None]
  - SUICIDE ATTEMPT [None]
